FAERS Safety Report 8380178-8 (Version None)
Quarter: 2012Q2

REPORT INFORMATION
  Report Type: 
  Country: None (occurrence: None)
  Receive Date: 20120523
  Receipt Date: 20120518
  Transmission Date: 20120825
  Serious: Yes (Other)
  Sender: FDA-Public Use
  Company Number: US-PFIZER INC-2012121434

PATIENT
  Sex: Male

DRUGS (3)
  1. LASIX [Concomitant]
     Dosage: UNK
  2. NORVASC [Suspect]
     Indication: ATRIAL FIBRILLATION
     Dosage: 5 MG, UNK
     Route: 048
  3. NORVASC [Suspect]
     Indication: OFF LABEL USE

REACTIONS (1)
  - BRADYCARDIA [None]
